FAERS Safety Report 17185099 (Version 1)
Quarter: 2019Q4

REPORT INFORMATION
  Report Type: Spontaneous
  Country: US (occurrence: US)
  Receive Date: 20191129
  Receipt Date: 20191129
  Transmission Date: 20200122
  Serious: Yes (Hospitalization)
  Sender: FDA-Public Use
  Company Number: None

PATIENT
  Age: 69 Year
  Sex: Female
  Weight: 93.5 kg

DRUGS (1)
  1. ASPIRIN (27223) [Suspect]
     Active Substance: ASPIRIN
     Dates: end: 20191008

REACTIONS (11)
  - Arthralgia [None]
  - Joint swelling [None]
  - Myositis [None]
  - Muscle strain [None]
  - Joint effusion [None]
  - Back pain [None]
  - Asthenia [None]
  - Haematoma [None]
  - Streptococcus test positive [None]
  - Fasciitis [None]
  - Injury [None]

NARRATIVE: CASE EVENT DATE: 20191016
